FAERS Safety Report 21531997 (Version 1)
Quarter: 2022Q4

REPORT INFORMATION
  Report Type: Spontaneous
  Country: US (occurrence: US)
  Receive Date: 20221101
  Receipt Date: 20221101
  Transmission Date: 20230113
  Serious: Yes (Other)
  Sender: FDA-Public Use
  Company Number: US-JNJFOC-20221040969

PATIENT
  Age: 84 Year
  Sex: Female
  Weight: 56.750 kg

DRUGS (2)
  1. OPSUMIT [Suspect]
     Active Substance: MACITENTAN
     Indication: Pulmonary hypertension
     Route: 048
     Dates: start: 20221018
  2. FUROSEMIDE [Concomitant]
     Active Substance: FUROSEMIDE

REACTIONS (5)
  - Restrictive pulmonary disease [Unknown]
  - Oedema peripheral [Unknown]
  - Cardiac disorder [Unknown]
  - Anxiety [Unknown]
  - Chest discomfort [Unknown]
